FAERS Safety Report 18042138 (Version 1)
Quarter: 2020Q3

REPORT INFORMATION
  Report Type: Spontaneous
  Country: BR (occurrence: BR)
  Receive Date: 20200720
  Receipt Date: 20200720
  Transmission Date: 20201103
  Serious: Yes (Death)
  Sender: FDA-Public Use
  Company Number: BR-ROCHE-2638608

PATIENT
  Sex: Male
  Weight: 90 kg

DRUGS (2)
  1. ACTEMRA [Suspect]
     Active Substance: TOCILIZUMAB
     Indication: COVID-19 PNEUMONIA
     Dosage: 600 MG ONLY DOSE
     Route: 042
     Dates: start: 20200610, end: 20200610
  2. NORADRENALIN [Concomitant]
     Active Substance: NOREPINEPHRINE\NOREPINEPHRINE BITARTRATE
     Route: 042

REACTIONS (3)
  - Off label use [Fatal]
  - Intentional product use issue [Fatal]
  - COVID-19 [Fatal]
